FAERS Safety Report 11811835 (Version 1)
Quarter: 2015Q4

REPORT INFORMATION
  Report Type: Spontaneous
  Country: FR (occurrence: FR)
  Receive Date: 20151208
  Receipt Date: 20151208
  Transmission Date: 20160305
  Serious: Yes (Hospitalization)
  Sender: FDA-Public Use
  Company Number: FR-SA-2015SA197565

PATIENT
  Age: 45 Year
  Sex: Male

DRUGS (3)
  1. APROVEL [Suspect]
     Active Substance: IRBESARTAN
     Route: 048
     Dates: end: 20151022
  2. DIAMICRON [Concomitant]
     Active Substance: GLICLAZIDE
     Route: 048
  3. METFORMIN [Concomitant]
     Active Substance: METFORMIN HYDROCHLORIDE
     Route: 048
     Dates: end: 20151022

REACTIONS (1)
  - Acute kidney injury [Recovered/Resolved]

NARRATIVE: CASE EVENT DATE: 20151022
